FAERS Safety Report 7377225-9 (Version None)
Quarter: 2011Q1

REPORT INFORMATION
  Report Type: 
  Country: None (occurrence: None)
  Receive Date: 20110328
  Receipt Date: 20070430
  Transmission Date: 20110831
  Serious: No
  Sender: FDA-Public Use
  Company Number: 2007BI009600

PATIENT
  Age: 41 Year
  Sex: Female

DRUGS (2)
  1. TYSABRI [Suspect]
     Indication: MULTIPLE SCLEROSIS
     Route: 042
     Dates: start: 20050223
  2. TYSABRI [Suspect]
     Route: 042
     Dates: start: 20061113, end: 20070430

REACTIONS (6)
  - URTICARIA [None]
  - CHILLS [None]
  - NAUSEA [None]
  - PAIN [None]
  - MYALGIA [None]
  - VOMITING [None]
